FAERS Safety Report 6239017-3 (Version None)
Quarter: 2009Q2

REPORT INFORMATION
  Report Type: 
  Country: None (occurrence: None)
  Receive Date: 20090622
  Receipt Date: 20090617
  Transmission Date: 20091009
  Serious: Yes (Hospitalization)
  Sender: FDA-Public Use
  Company Number: B0579348A

PATIENT
  Sex: Male

DRUGS (7)
  1. VALACYCLOVIR HCL [Suspect]
     Indication: PROPHYLAXIS
     Dosage: 500MG TWICE PER DAY
     Route: 065
     Dates: end: 20090506
  2. ALLOPURINOL [Suspect]
     Indication: DRUG USE FOR UNKNOWN INDICATION
     Dosage: 100MG PER DAY
     Route: 048
     Dates: end: 20090429
  3. ENDOXAN [Suspect]
     Dosage: 500MG PER DAY
     Route: 065
     Dates: start: 20090305, end: 20090307
  4. FLUDARABINE PHOSPHATE [Suspect]
     Dosage: 80MG PER DAY
     Route: 065
     Dates: start: 20090305, end: 20090307
  5. MABTHERA [Suspect]
     Dosage: 700MG PER DAY
     Route: 065
     Dates: start: 20090305, end: 20090305
  6. BACTRIM DS [Suspect]
     Indication: PROPHYLAXIS
     Dosage: 800MG THREE TIMES PER WEEK
     Route: 048
     Dates: end: 20090409
  7. WELLVONE [Concomitant]
     Route: 065
     Dates: start: 20090409

REACTIONS (4)
  - AGRANULOCYTOSIS [None]
  - HAEMOGLOBIN DECREASED [None]
  - NEUTROPENIA [None]
  - PLATELET COUNT DECREASED [None]
